FAERS Safety Report 12390289 (Version 2)
Quarter: 2016Q2

REPORT INFORMATION
  Report Type: Spontaneous
  Country: GH (occurrence: GH)
  Receive Date: 20160520
  Receipt Date: 20160601
  Transmission Date: 20160815
  Serious: Yes (Death, Other)
  Sender: FDA-Public Use
  Company Number: GH-PFIZER INC-2016266362

PATIENT
  Age: 33 Year
  Sex: Male

DRUGS (2)
  1. ZITHROMAX [Suspect]
     Active Substance: AZITHROMYCIN DIHYDRATE
     Indication: PNEUMONIA
     Dosage: 500 MG, DAILY
     Route: 040
     Dates: start: 20160517, end: 20160517
  2. CEFTRIAXONE. [Suspect]
     Active Substance: CEFTRIAXONE
     Indication: PNEUMONIA
     Dosage: 2 G, STAT (AT ONCE)
     Route: 042
     Dates: start: 20160517, end: 20160517

REACTIONS (6)
  - Palpitations [Fatal]
  - Incorrect route of drug administration [Fatal]
  - Loss of consciousness [Fatal]
  - Conversion disorder [Fatal]
  - Nasopharyngitis [Unknown]
  - Hyperhidrosis [Recovered/Resolved]

NARRATIVE: CASE EVENT DATE: 20160517
